FAERS Safety Report 18531229 (Version 1)
Quarter: 2020Q4

REPORT INFORMATION
  Report Type: Spontaneous
  Country: RO (occurrence: RO)
  Receive Date: 20201122
  Receipt Date: 20201122
  Transmission Date: 20210114
  Serious: Yes (Other)
  Sender: FDA-Public Use
  Company Number: RO-ANIPHARMA-2020-RO-000021

PATIENT
  Age: 52 Year
  Sex: Female

DRUGS (5)
  1. PERTUZUMAB. [Suspect]
     Active Substance: PERTUZUMAB
     Dosage: . DOSE TEXT: 4 SERIES / DOSE TEXT: TRASTUZUMAB PLUS PERTUZUMAB EVERY THREE WEEKS / DOSE TEXT: TRASTU
     Route: 065
     Dates: start: 201901, end: 202003
  2. TRASTUZUMAB. [Suspect]
     Active Substance: TRASTUZUMAB
     Dosage: 4 SERIES OF DOCETAXEL + TRASTUZUMAB + PERTUZUMAB/DOSE TEXT: TRASTUZUMAB + PERTUZUMAB (UNKNOWN DOSE E
     Route: 065
     Dates: start: 201901, end: 202003
  3. TRASTUZUMAB EMTANSINE [Suspect]
     Active Substance: ADO-TRASTUZUMAB EMTANSINE
     Dosage: 3.6 MG/KG Q3WK
     Route: 065
     Dates: start: 202006
  4. ANASTROZOLE. [Suspect]
     Active Substance: ANASTROZOLE
     Indication: HER2 POSITIVE BREAST CANCER
     Dosage: TRASTUZUMAB PLUS PERTUZUMAB PLUS ANASTROZOLE
     Route: 048
     Dates: start: 201909, end: 202003
  5. DOCETAXEL. [Suspect]
     Active Substance: DOCETAXEL
     Dosage: DOCETAXEL PLUS PERTUZUMAB, TRASTUZUMAB
     Route: 065
     Dates: start: 201901, end: 201905

REACTIONS (4)
  - Alanine aminotransferase increased [Unknown]
  - Metastatic neoplasm [Unknown]
  - Aspartate aminotransferase increased [Unknown]
  - Drug ineffective [Unknown]
